FAERS Safety Report 9785880 (Version 1)
Quarter: 2013Q4

REPORT INFORMATION
  Report Type: Spontaneous
  Country: PL (occurrence: PL)
  Receive Date: 20131227
  Receipt Date: 20131227
  Transmission Date: 20140711
  Serious: Yes (Other)
  Sender: FDA-Public Use
  Company Number: PL-ABBVIE-13P-129-1181630-00

PATIENT
  Age: 27 Year
  Sex: Female
  Weight: 67 kg

DRUGS (3)
  1. HUMIRA [Suspect]
     Indication: ARTHRITIS ENTEROPATHIC
     Route: 058
     Dates: start: 20130214, end: 20130916
  2. METHOTREXAT (METHOTREXATE) [Concomitant]
     Indication: ARTHRITIS ENTEROPATHIC
     Route: 048
     Dates: start: 2006
  3. TIANESAL [Concomitant]
     Indication: DEPRESSION
     Dates: start: 201308

REACTIONS (4)
  - Arthralgia [Unknown]
  - Joint swelling [Unknown]
  - Tendon pain [Unknown]
  - Psoriasis [Unknown]
